FAERS Safety Report 7277612 (Version 12)
Quarter: 2012Q4

REPORT INFORMATION
  Report Type: 
  Country: US (occurrence: US)
  Receive Date: 20100212
  Receipt Date: 20121109
  Transmission Date: 20130627
  Serious: Yes (Other)
  Sender: FDA-Public Use
  Company Number: PHEH2010US01812

PATIENT
  Sex: Female

DRUGS (33)
  1. ZOMETA [Suspect]
     Indication: BREAST CANCER
     Dates: start: 200512, end: 200804
  2. FOSAMAX [Suspect]
     Indication: BREAST CANCER
     Dates: end: 2008
  3. LIPITOR [Concomitant]
  4. CARVEDILOL [Concomitant]
  5. PLAVIX [Concomitant]
  6. OXYCODONE [Concomitant]
  7. CITALOPRAM [Concomitant]
  8. NITROGLYCERIN [Concomitant]
  9. ASPIRIN [Concomitant]
  10. ACETAMINOPHEN [Concomitant]
  11. MULTIVITAMIN [Concomitant]
  12. CALCIUM [Concomitant]
  13. LISINOPRIL [Concomitant]
  14. CYMBALTA [Concomitant]
  15. VITAMIN C [Concomitant]
  16. OMEGA 3 [Concomitant]
  17. LOVENOX [Concomitant]
     Dosage: 40 mg, QD
     Route: 058
  18. MAALOX                                  /USA/ [Concomitant]
     Dosage: 30 ml, Q4H, PRN
     Route: 048
  19. TYLENOL [Concomitant]
     Dosage: 650 mg, Q4H, PRN
  20. ZOCOR [Concomitant]
     Dosage: 40 mg, QHS
     Route: 048
  21. PROVENTIL [Concomitant]
  22. ROCEPHIN [Concomitant]
     Dosage: 1 g, QD
     Route: 042
  23. AZITHROMYCIN [Concomitant]
     Dosage: 500 mg, QD
     Route: 042
  24. ADRIAMYCIN [Concomitant]
  25. CYTOXAN [Concomitant]
  26. MS CONTIN [Concomitant]
     Dosage: 60 mg, BID
     Route: 048
  27. ZEGERID [Concomitant]
     Dosage: 40 mg, QD
  28. DILAUDID [Concomitant]
     Dosage: 60 mg, Six times a day
  29. CLONIDINE [Concomitant]
  30. REGLAN                                  /USA/ [Concomitant]
  31. HYDROCHLOROTHIAZIDE [Concomitant]
  32. ARIMIDEX [Concomitant]
  33. AROMASIN [Concomitant]

REACTIONS (75)
  - Myocardial infarction [Unknown]
  - Chest pain [Unknown]
  - Dyspnoea [Unknown]
  - Lymphadenopathy [Unknown]
  - Coronary artery disease [Unknown]
  - Phaeochromocytoma [Unknown]
  - Neuropathy peripheral [Unknown]
  - Depression [Unknown]
  - Neoplasm progression [Unknown]
  - Malignant neoplasm progression [Unknown]
  - Osteonecrosis of jaw [Unknown]
  - Pain [Unknown]
  - Injury [Unknown]
  - Anxiety [Unknown]
  - Anhedonia [Unknown]
  - Tooth loss [Unknown]
  - Pathological fracture [Unknown]
  - Breath odour [Unknown]
  - Oroantral fistula [Unknown]
  - Exposed bone in jaw [Unknown]
  - Osteomyelitis [Unknown]
  - Hypertension [Unknown]
  - Abdominal pain [Unknown]
  - Pelvic pain [Unknown]
  - Hyperlipidaemia [Unknown]
  - Hypercholesterolaemia [Unknown]
  - Thrombocytopenia [Unknown]
  - Gastritis [Unknown]
  - Duodenitis [Unknown]
  - Constipation [Unknown]
  - Diarrhoea [Unknown]
  - Leukocytosis [Unknown]
  - Nausea [Unknown]
  - Chronic obstructive pulmonary disease [Unknown]
  - Dyslipidaemia [Unknown]
  - Asthma [Unknown]
  - Pneumonia [Unknown]
  - Hypotension [Unknown]
  - Cardiac failure congestive [Unknown]
  - Sinus bradycardia [Unknown]
  - Hiatus hernia [Unknown]
  - Adrenal neoplasm [Unknown]
  - Fatigue [Unknown]
  - Hyperalbuminaemia [Unknown]
  - Hypercalcaemia [Unknown]
  - Musculoskeletal discomfort [Recovering/Resolving]
  - Tuberculosis [Unknown]
  - Macrocytosis [Unknown]
  - Hepatic steatosis [Unknown]
  - Metaplasia [Unknown]
  - Loose tooth [Unknown]
  - Electrocardiogram T wave inversion [Unknown]
  - Left ventricular hypertrophy [Unknown]
  - Aortic aneurysm [Unknown]
  - Pleural effusion [Unknown]
  - Lung infiltration [Unknown]
  - Gallbladder disorder [Unknown]
  - Gingival infection [Unknown]
  - Lung hyperinflation [Unknown]
  - Hypokinesia [Unknown]
  - Osteoporosis [Unknown]
  - Gastrooesophageal reflux disease [Unknown]
  - Aortic arteriosclerosis [Unknown]
  - Nasal septum deviation [Unknown]
  - Intervertebral disc degeneration [Unknown]
  - Atelectasis [Unknown]
  - Tenosynovitis stenosans [Unknown]
  - Spinal osteoarthritis [Unknown]
  - Spinal column stenosis [Unknown]
  - Diabetes mellitus [Unknown]
  - Renal failure chronic [Unknown]
  - Left ventricular dysfunction [Unknown]
  - Dyskinesia [Unknown]
  - Angina pectoris [Unknown]
  - Aortic dilatation [Unknown]
